FAERS Safety Report 5685223-6 (Version None)
Quarter: 2008Q1

REPORT INFORMATION
  Report Type: 
  Country: None (occurrence: None)
  Receive Date: 20080328
  Receipt Date: 20080317
  Transmission Date: 20080703
  Serious: Yes (Other)
  Sender: FDA-Public Use
  Company Number: US-ELI_LILLY_AND_COMPANY-US200802006886

PATIENT
  Age: 55 Year
  Sex: Male
  Weight: 93.878 kg

DRUGS (4)
  1. CYMBALTA [Suspect]
     Dosage: 60 MG, DAILY (1/D)
     Dates: start: 20070613, end: 20080101
  2. CYMBALTA [Suspect]
     Dosage: 30 MG, DAILY (1/D)
     Dates: start: 20080101, end: 20080124
  3. PRILOSEC [Concomitant]
     Indication: GASTROOESOPHAGEAL REFLUX DISEASE
  4. LOTREL [Concomitant]
     Indication: HYPERTENSION

REACTIONS (7)
  - ALANINE AMINOTRANSFERASE INCREASED [None]
  - ASPARTATE AMINOTRANSFERASE INCREASED [None]
  - BLOOD ALKALINE PHOSPHATASE INCREASED [None]
  - BLOOD BILIRUBIN INCREASED [None]
  - MALAISE [None]
  - NAUSEA [None]
  - PRURITUS [None]
